FAERS Safety Report 25578940 (Version 4)
Quarter: 2025Q4

REPORT INFORMATION
  Report Type: Report from Study
  Country: US (occurrence: US)
  Receive Date: 20250718
  Receipt Date: 20251001
  Transmission Date: 20260117
  Serious: Yes (Other)
  Sender: DECIPHERA PHARMACEUTICALS
  Company Number: US-DECIPHERA PHARMACEUTICALS LLC-2025US000784

PATIENT
  Age: 51 Year
  Sex: Female
  Weight: 114.8 kg

DRUGS (26)
  1. QINLOCK [Suspect]
     Active Substance: RIPRETINIB
     Indication: Gastrointestinal stromal tumour
     Dosage: 150 MILLIGRAM, QD (3 TABLETS BY MOUTH DAILY)
     Dates: start: 20250412, end: 20250616
  2. QINLOCK [Suspect]
     Active Substance: RIPRETINIB
     Dosage: UNK UNK, QD
  3. HYZAAR [Suspect]
     Active Substance: HYDROCHLOROTHIAZIDE\LOSARTAN POTASSIUM
     Indication: Product used for unknown indication
     Dosage: UNK, QD (50-12.5 MG PER TABLET, TOOK BY MOUTH EVERY DAY)
     Dates: start: 20250619
  4. ELIQUIS [Concomitant]
     Active Substance: APIXABAN
     Indication: Prophylaxis
     Dosage: UNK
  5. VITAMIN C [Concomitant]
     Active Substance: ASCORBIC ACID
     Indication: Product used for unknown indication
     Dosage: 1000 MILLIGRAM, QD (1 TABLET BY MOUTH DAILY)
  6. ASPIRIN [Concomitant]
     Active Substance: ASPIRIN
     Indication: Product used for unknown indication
     Dosage: 325 MILLIGRAM, QD (1 TABLET BY MOUTH DAILY) (WOULD TAKE TILL 5-DEC-2025)
     Dates: start: 20250807
  7. LIPITOR [Concomitant]
     Active Substance: ATORVASTATIN CALCIUM
     Indication: Product used for unknown indication
     Dosage: 20 MILLIGRAM, QD (1 TABLET BY MOUTH DAILY)
     Dates: start: 20250731
  8. CLEOCIN T [Concomitant]
     Active Substance: CLINDAMYCIN PHOSPHATE
     Indication: Product used for unknown indication
     Dosage: UNK, BID (1 PERCENT LOTION, APPLY TO AFFECTED AREAS TWICE DAILY ON THE ABDOMEN)
     Dates: start: 20250709
  9. PLAVIX [Concomitant]
     Active Substance: CLOPIDOGREL BISULFATE
     Indication: Product used for unknown indication
     Dosage: 75 MILLIGRAM, QD (1 TABLET BY MOUTH DAILY, WOULD TAKE TILL 5-DEC-2025)
     Dates: start: 20250807
  10. VITAMIN B12 [Concomitant]
     Active Substance: CYANOCOBALAMIN
     Indication: Product used for unknown indication
     Dosage: 100 MICROGRAM, QD (1 TABLET ONCE DAILY BY MOUTH)
  11. FERROUS SULFATE [Concomitant]
     Active Substance: FERROUS SULFATE
     Indication: Product used for unknown indication
     Dosage: 325 MILLIGRAM, QD (TAKE 1 TABLET BY MOUTH DAILY WITH BREAKFAST - ORAL)
     Dates: start: 20250619
  12. LEVOTHYROXINE [Concomitant]
     Active Substance: LEVOTHYROXINE
     Indication: Product used for unknown indication
     Dosage: 25 MICROGRAM, QD (TOOK 1 TABLET BY MOUTH EVERY MORNING ON AN EMPTY STOMACH - ORAL)
     Dates: start: 20250619
  13. CLARITIN [Concomitant]
     Active Substance: LORATADINE
     Indication: Product used for unknown indication
     Dosage: UNK, PRN (TOOK BY MOUTH DAILY AS NEEDED - ORAL)
  14. MAGNESIUM OXIDE [Concomitant]
     Active Substance: MAGNESIUM OXIDE
     Indication: Product used for unknown indication
     Dosage: 250 MILLIGRAM, QD (TOOK 1 TABLET BY MOUTH DAILY)
     Dates: start: 20190228
  15. MYCOSTATIN [Concomitant]
     Active Substance: NYSTATIN
     Indication: Product used for unknown indication
     Dosage: UNK, BID (APPLY POWDER TO AFFECTED AREA TWICE DAILY AS NEEDED)
     Dates: start: 20231127
  16. PRILOSEC OTC [Concomitant]
     Active Substance: OMEPRAZOLE MAGNESIUM
     Indication: Product used for unknown indication
     Dosage: 20 MILLIGRAM, QD (TOOK 1 TABLET BY MOUTH DAILY.)
     Dates: start: 20180222
  17. ZOFRAN [Concomitant]
     Active Substance: ONDANSETRON HYDROCHLORIDE
     Indication: Nausea
     Dosage: 4 MILLIGRAM, TOOK 1 TABLET (4 MG TOTAL) BY MOUTH EVERY 8 HOURS AS NEEDED
  18. POTASSIUM CHLORIDE [Concomitant]
     Active Substance: POTASSIUM CHLORIDE
     Indication: Product used for unknown indication
     Dosage: 20 MILLIEQUIVALENT, QD (TOOK 1 TABLET BY MOUTH DAILY)
     Dates: start: 20250619
  19. REQUIP [Concomitant]
     Active Substance: ROPINIROLE HYDROCHLORIDE
     Indication: Product used for unknown indication
     Dosage: 0.25 MILLIGRAM, BID (TOOK 1 TABLET BY MOUTH DAILY)
     Dates: start: 20250812
  20. ZOLOFT [Concomitant]
     Active Substance: SERTRALINE HYDROCHLORIDE
     Indication: Product used for unknown indication
     Dosage: 100 MILLIGRAM, BID (TOOK 2 TABLETS BY MOUTH DAILY)
     Dates: start: 20250728
  21. VESICARE [Concomitant]
     Active Substance: SOLIFENACIN SUCCINATE
     Indication: Product used for unknown indication
     Dosage: 10 MILLIGRAM, QD (TOOK 1 TABLET BY MOUTH DAILY)
     Dates: start: 20250812
  22. ZANAFLEX [Concomitant]
     Active Substance: TIZANIDINE HYDROCHLORIDE
     Indication: Muscle spasms
     Dosage: UNK, 1/2-1 TABLET EVERY 6-8 HOURS AS NEEDED
  23. TOPAMAX [Concomitant]
     Active Substance: TOPIRAMATE
     Indication: Product used for unknown indication
     Dosage: 25 MILLIGRAM, TID (TOOK ONE TAB IN AM AND TWO TAB IN THE PM)
     Dates: start: 20240604
  24. TRAMADOL [Concomitant]
     Active Substance: TRAMADOL
     Indication: Pain
     Dosage: 50 MILLIGRAM (TOOK 1 TABLET (50 MG TOTAL) BY MOUTH EVERY 8 (EIGHT) HOURS AS NEEDED)
  25. TRAMADOL [Concomitant]
     Active Substance: TRAMADOL
     Dosage: UNK, QD, TAKE 1,000 UNITS BY MOUTH DAILY
  26. ZINC [Concomitant]
     Active Substance: ZINC
     Indication: Product used for unknown indication
     Dosage: 50 MILLIGRAM

REACTIONS (16)
  - Metastases to liver [Unknown]
  - Hypokalaemia [Unknown]
  - Intracranial aneurysm [Unknown]
  - Peripheral swelling [Unknown]
  - Decreased appetite [Unknown]
  - Pain in extremity [Unknown]
  - Abdominal discomfort [Recovering/Resolving]
  - Eye pain [Unknown]
  - C-reactive protein increased [Unknown]
  - Red blood cell sedimentation rate increased [Unknown]
  - Stress [Unknown]
  - Constipation [Unknown]
  - Fatigue [Unknown]
  - Alopecia [Unknown]
  - Headache [Unknown]
  - Hypertension [Unknown]

NARRATIVE: CASE EVENT DATE: 20250101
